FAERS Safety Report 16811681 (Version 1)
Quarter: 2019Q3

REPORT INFORMATION
  Report Type: Spontaneous
  Country: NO (occurrence: NO)
  Receive Date: 20190916
  Receipt Date: 20190916
  Transmission Date: 20191005
  Serious: Yes (Life-Threatening, Other)
  Sender: FDA-Public Use
  Company Number: NO-MYLANLABS-2019M1086116

PATIENT
  Age: 49 Year
  Sex: Female
  Weight: 72 kg

DRUGS (2)
  1. NITROFURANTOIN MYLAN [Suspect]
     Active Substance: NITROFURANTOIN
     Indication: PYELITIS
     Dosage: UNK
     Route: 048
  2. NITROFURANTOIN MYLAN [Suspect]
     Active Substance: NITROFURANTOIN
     Indication: URINARY TRACT INFECTION

REACTIONS (3)
  - Rash [Unknown]
  - Jaundice [Recovering/Resolving]
  - Pyrexia [Unknown]

NARRATIVE: CASE EVENT DATE: 20181201
